FAERS Safety Report 18067049 (Version 5)
Quarter: 2025Q3

REPORT INFORMATION
  Report Type: Spontaneous
  Country: EU (occurrence: EU)
  Receive Date: 20200724
  Receipt Date: 20250703
  Transmission Date: 20251020
  Serious: Yes (Disabling, Other)
  Sender: MERCK SHARP & DOHME LLC
  Company Number: None

PATIENT
  Age: 13 Year
  Sex: Female

DRUGS (6)
  1. CASPOFUNGIN ACETATE [Suspect]
     Active Substance: CASPOFUNGIN ACETATE
     Indication: Bronchopulmonary aspergillosis
     Dosage: OSE DESCRIPTION : 70 MILLIGRAM, QD, FROM DAY 10 OF INITIAL TREATMENT, UNTIL DAY 201. DAILY DOSE :...
     Route: 042
  2. CASPOFUNGIN ACETATE [Suspect]
     Active Substance: CASPOFUNGIN ACETATE
     Indication: Bronchopulmonary aspergillosis
     Dosage: DOSE DESCRIPTION : 1 MILLIGRAM, QD. FROM DAY 13 OF INITIAL TREATMENT. DAILY DOSE : 1 MILLIGRAM RE...
     Route: 042
  3. CASPOFUNGIN ACETATE [Suspect]
     Active Substance: CASPOFUNGIN ACETATE
     Indication: Bronchopulmonary aspergillosis
     Route: 042
  4. CASPOFUNGIN ACETATE [Suspect]
     Active Substance: CASPOFUNGIN ACETATE
     Indication: Bronchopulmonary aspergillosis
     Route: 042
  5. AMPHOTERICIN B\CHOLESTEROL [Suspect]
     Active Substance: AMPHOTERICIN B\CHOLESTEROL
     Indication: Bronchopulmonary aspergillosis
     Route: 042
  6. AMPHOTERICIN B\CHOLESTEROL [Suspect]
     Active Substance: AMPHOTERICIN B\CHOLESTEROL
     Indication: Bronchopulmonary aspergillosis
     Dosage: DOSE DESCRIPTION : 1 MILLIGRAM, QW. FROM DAY 24 UNTIL DAY 201.?DAILY DOSE : 0.143 MILLIGRAM?REGIM...
     Route: 050

REACTIONS (5)
  - Epilepsy [Unknown]
  - Frontotemporal dementia [Unknown]
  - Muscle spasticity [Unknown]
  - Headache [Recovered/Resolved]
  - Product use issue [Unknown]
